FAERS Safety Report 7040960-6 (Version None)
Quarter: 2010Q4

REPORT INFORMATION
  Report Type: 
  Country: None (occurrence: None)
  Receive Date: 20101013
  Receipt Date: 20101008
  Transmission Date: 20110411
  Serious: Yes (Death, Other)
  Sender: FDA-Public Use
  Company Number: JP-SANOFI-AVENTIS-2010SA061278

PATIENT
  Age: 69 Year
  Sex: Male

DRUGS (6)
  1. OXALIPLATIN [Suspect]
     Indication: RECTAL CANCER METASTATIC
     Route: 041
     Dates: start: 20100906, end: 20100906
  2. AVASTIN [Suspect]
     Indication: RECTAL CANCER METASTATIC
     Route: 041
     Dates: start: 20100906, end: 20100906
  3. XELODA [Suspect]
     Indication: RECTAL CANCER METASTATIC
     Route: 048
     Dates: start: 20100906, end: 20100919
  4. AZASETRON [Concomitant]
     Dates: start: 20100906, end: 20100906
  5. DECADRON [Concomitant]
     Dates: start: 20100906, end: 20100906
  6. PYDOXAL [Concomitant]
     Dates: start: 20100906, end: 20100924

REACTIONS (4)
  - ATRIAL THROMBOSIS [None]
  - DIARRHOEA [None]
  - PULMONARY EMBOLISM [None]
  - THROMBOSIS IN DEVICE [None]
